FAERS Safety Report 16098454 (Version 1)
Quarter: 2019Q1

REPORT INFORMATION
  Report Type: Spontaneous
  Country: GB (occurrence: GB)
  Receive Date: 20190321
  Receipt Date: 20190321
  Transmission Date: 20190418
  Serious: Yes (Disabling)
  Sender: FDA-Public Use
  Company Number: GB-TEVA-2019-GB-1025955

PATIENT
  Age: 81 Year
  Sex: Female
  Weight: 68.9 kg

DRUGS (7)
  1. CO-AMILOZIDE [Suspect]
     Active Substance: AMILORIDE HYDROCHLORIDE\HYDROCHLOROTHIAZIDE
     Indication: GRAVITATIONAL OEDEMA
     Dosage: 5/50
     Route: 048
     Dates: start: 19940706, end: 20190220
  2. ACICLOVIR [Concomitant]
     Active Substance: ACYCLOVIR
  3. WARFARIN [Concomitant]
     Active Substance: WARFARIN
  4. ACTIKERALL [Concomitant]
  5. ARTELAC [Concomitant]
     Active Substance: HYPROMELLOSES
  6. LATANOPROST. [Concomitant]
     Active Substance: LATANOPROST
  7. PREDNISOLONE SODIUM PHOSPHATE. [Concomitant]
     Active Substance: PREDNISOLONE SODIUM PHOSPHATE

REACTIONS (1)
  - Squamous cell carcinoma [Recovered/Resolved with Sequelae]

NARRATIVE: CASE EVENT DATE: 20110608
